FAERS Safety Report 6676801-6 (Version None)
Quarter: 2010Q2

REPORT INFORMATION
  Report Type: 
  Country: None (occurrence: None)
  Receive Date: 20100409
  Receipt Date: 20100409
  Transmission Date: 20101027
  Serious: Yes (Life-Threatening, Hospitalization, Other)
  Sender: FDA-Public Use
  Company Number: None

PATIENT
  Sex: Male
  Weight: 72.5755 kg

DRUGS (1)
  1. ATRIPLA [Suspect]
     Indication: URTICARIA
     Dosage: 1 PILL A DAY

REACTIONS (8)
  - BLOOD URINE PRESENT [None]
  - DIARRHOEA [None]
  - FEELING ABNORMAL [None]
  - FEELING OF BODY TEMPERATURE CHANGE [None]
  - MALAISE [None]
  - OCULAR ICTERUS [None]
  - VOMITING [None]
  - YELLOW SKIN [None]
